FAERS Safety Report 21675384 (Version 1)
Quarter: 2022Q4

REPORT INFORMATION
  Report Type: Spontaneous
  Country: US (occurrence: US)
  Receive Date: 20221202
  Receipt Date: 20221202
  Transmission Date: 20230112
  Serious: Yes (Hospitalization, Other)
  Sender: FDA-Public Use
  Company Number: US-SA-2022SA489963

PATIENT
  Age: 67 Year
  Sex: Male

DRUGS (1)
  1. SEVELAMER [Suspect]
     Active Substance: SEVELAMER
     Indication: End stage renal disease

REACTIONS (9)
  - Gastrointestinal necrosis [Recovered/Resolved]
  - Abdominal pain [Recovered/Resolved]
  - Nausea [Recovered/Resolved]
  - Vomiting [Recovered/Resolved]
  - Septic shock [Unknown]
  - Pneumoperitoneum [Unknown]
  - Large intestine perforation [Recovered/Resolved]
  - Anastomotic ulcer [Unknown]
  - Crystal deposit intestine [Unknown]
